FAERS Safety Report 9469928 (Version 1)
Quarter: 2013Q3

REPORT INFORMATION
  Report Type: Spontaneous
  Country: US (occurrence: None)
  Receive Date: 20130820
  Receipt Date: 20130820
  Transmission Date: 20140515
  Serious: Yes (Hospitalization)
  Sender: FDA-Public Use
  Company Number: None

PATIENT
  Age: 56 Year
  Sex: Male

DRUGS (1)
  1. NORTRIPTYLINE [Suspect]
     Indication: NEURALGIA
     Route: 048
     Dates: start: 20130726, end: 20130812

REACTIONS (7)
  - Dry mouth [None]
  - Vision blurred [None]
  - Dizziness [None]
  - Toxicity to various agents [None]
  - Hyperhidrosis [None]
  - QRS axis abnormal [None]
  - Hypotension [None]
